FAERS Safety Report 24604718 (Version 1)
Quarter: 2024Q4

REPORT INFORMATION
  Report Type: Spontaneous
  Country: US (occurrence: US)
  Receive Date: 20241111
  Receipt Date: 20241111
  Transmission Date: 20250115
  Serious: Yes (Other)
  Sender: COOPERSURGICAL
  Company Number: US-COOPERSURGICAL, INC.-2024CPS003319

PATIENT
  Age: 27 Year
  Sex: Female
  Weight: 77.098 kg

DRUGS (2)
  1. PARAGARD T 380A [Suspect]
     Active Substance: COPPER
     Indication: Contraception
     Dosage: UNK
     Route: 015
     Dates: start: 20110301
  2. LORAZEPAM [Concomitant]
     Active Substance: LORAZEPAM
     Indication: Anxiety
     Dosage: UNK
     Dates: start: 201102

REACTIONS (7)
  - Reproductive complication associated with device [Unknown]
  - Complication of device removal [Unknown]
  - Embedded device [Unknown]
  - Mental disorder [Unknown]
  - Device material issue [Unknown]
  - Device expulsion [Unknown]
  - Discomfort [Unknown]

NARRATIVE: CASE EVENT DATE: 20210122
